FAERS Safety Report 9437754 (Version 1)
Quarter: 2013Q3

REPORT INFORMATION
  Report Type: Report from Study
  Country: US (occurrence: US)
  Receive Date: 20130802
  Receipt Date: 20130802
  Transmission Date: 20140515
  Serious: Yes (Hospitalization, Other)
  Sender: FDA-Public Use
  Company Number: US-ASTRAZENECA-2013SE47036

PATIENT
  Age: 64 Year
  Sex: Male
  Weight: 95.3 kg

DRUGS (12)
  1. NEXIUM [Suspect]
     Indication: GASTROOESOPHAGEAL REFLUX DISEASE
     Route: 048
     Dates: start: 2003
  2. NEXIUM [Suspect]
     Indication: HIATUS HERNIA
     Route: 048
     Dates: start: 2003
  3. NEXIUM [Suspect]
     Indication: GASTROOESOPHAGEAL REFLUX DISEASE
     Route: 048
  4. NEXIUM [Suspect]
     Indication: HIATUS HERNIA
     Route: 048
  5. NEXIUM [Suspect]
     Indication: GASTROOESOPHAGEAL REFLUX DISEASE
     Route: 048
  6. NEXIUM [Suspect]
     Indication: HIATUS HERNIA
     Route: 048
  7. ENALAPRIL [Concomitant]
     Indication: HYPERTENSION
     Dates: start: 201306
  8. DOXAZOSIN [Concomitant]
     Indication: HYPERTENSION
     Dates: start: 201306
  9. DOXAZOSIN [Concomitant]
     Indication: HYPERTENSION
  10. LIPITOR [Concomitant]
     Indication: BLOOD CHOLESTEROL ABNORMAL
  11. AMLODIPINE [Concomitant]
     Indication: HYPERTENSION
     Dates: start: 201306
  12. OVER THE COUNTER MEDICATIONS [Concomitant]

REACTIONS (2)
  - Cerebrovascular accident [Recovered/Resolved]
  - Cerebral haemorrhage [Unknown]
